FAERS Safety Report 19329240 (Version 1)
Quarter: 2021Q2

REPORT INFORMATION
  Report Type: Spontaneous
  Country: GB (occurrence: GB)
  Receive Date: 20210528
  Receipt Date: 20210528
  Transmission Date: 20210717
  Serious: Yes (Hospitalization)
  Sender: FDA-Public Use
  Company Number: GB-ENDO PHARMACEUTICALS INC-2021-008070

PATIENT
  Age: 48 Year
  Sex: Male

DRUGS (1)
  1. AVEED [Suspect]
     Active Substance: TESTOSTERONE UNDECANOATE
     Indication: BILATERAL ORCHIDECTOMY
     Dosage: 1 G, ONCE EVERY 10 WEEKS
     Route: 030
     Dates: start: 20180320, end: 20201002

REACTIONS (2)
  - Fat embolism [Recovered/Resolved]
  - Anaphylactic reaction [Recovered/Resolved]

NARRATIVE: CASE EVENT DATE: 20201002
